FAERS Safety Report 23462994 (Version 2)
Quarter: 2024Q1

REPORT INFORMATION
  Report Type: Spontaneous
  Country: US (occurrence: US)
  Receive Date: 20240131
  Receipt Date: 20240301
  Transmission Date: 20240410
  Serious: No
  Sender: FDA-Public Use
  Company Number: US-PFIZER INC-PV202200127057

PATIENT
  Age: 81 Year
  Sex: Female
  Weight: 81.633 kg

DRUGS (1)
  1. IBRANCE [Suspect]
     Active Substance: PALBOCICLIB
     Indication: Bone cancer
     Dosage: 100 MG DAILY ON DAYS 1-21 OF EACH 28-DAY CYCLE
     Route: 048

REACTIONS (3)
  - COVID-19 [Unknown]
  - Product dispensing error [Unknown]
  - Off label use [Unknown]
